FAERS Safety Report 11520966 (Version 1)
Quarter: 2015Q3

REPORT INFORMATION
  Report Type: Spontaneous
  Country: GB (occurrence: GB)
  Receive Date: 20150918
  Receipt Date: 20150918
  Transmission Date: 20151125
  Serious: Yes (Other)
  Sender: FDA-Public Use
  Company Number: GB-ACTAVIS-2015-19758

PATIENT
  Age: 72 Year
  Sex: Female
  Weight: 68.3 kg

DRUGS (1)
  1. LETROZOLE (UNKNOWN) [Suspect]
     Active Substance: LETROZOLE
     Indication: MASTECTOMY
     Dosage: 1 DF, DAILY
     Route: 048
     Dates: start: 201110, end: 201503

REACTIONS (2)
  - Dyspnoea exertional [Recovering/Resolving]
  - Arthralgia [Recovered/Resolved with Sequelae]

NARRATIVE: CASE EVENT DATE: 201409
